FAERS Safety Report 5012136-5 (Version None)
Quarter: 2006Q2

REPORT INFORMATION
  Report Type: 
  Country: None (occurrence: None)
  Receive Date: 20060524
  Receipt Date: 20060509
  Transmission Date: 20061013
  Serious: Yes (Death)
  Sender: FDA-Public Use
  Company Number: USA-2006-0023883

PATIENT
  Age: 45 Year
  Sex: Female
  Weight: 61.7 kg

DRUGS (5)
  1. OXYCONTIN (OXYCODONE HYDROCHLORIDE) PROLONGED-RELEASE TABLET [Suspect]
  2. FENTANYL [Suspect]
  3. VENLAFAXINE HCL [Suspect]
  4. TEMAZEPAM [Suspect]
  5. ALPRAZOLAM [Suspect]

REACTIONS (5)
  - DRUG PRESCRIBING ERROR [None]
  - DRUG TOXICITY [None]
  - INCORRECT ROUTE OF DRUG ADMINISTRATION [None]
  - INTENTIONAL DRUG MISUSE [None]
  - POLYSUBSTANCE ABUSE [None]
